FAERS Safety Report 10003546 (Version 3)
Quarter: 2014Q2

REPORT INFORMATION
  Report Type: Spontaneous
  Country: US (occurrence: US)
  Receive Date: 20140312
  Receipt Date: 20140611
  Transmission Date: 20141212
  Serious: No
  Sender: FDA-Public Use
  Company Number: US-INCYTE CORPORATION-2013IN001222

PATIENT
  Age: 79 Year
  Sex: Female
  Weight: 86.17 kg

DRUGS (4)
  1. JAKAFI [Suspect]
     Indication: MYELOFIBROSIS
     Dosage: 20 MG, BID
     Route: 048
  2. JAKAFI [Suspect]
     Dosage: 5 MG, UNK
  3. REVLIMID [Concomitant]
     Dosage: 5 MG, UNK
  4. NORVASC [Concomitant]
     Dosage: 5 MG, UNK

REACTIONS (7)
  - Muscle spasms [Unknown]
  - Fatigue [Unknown]
  - White blood cell count increased [Unknown]
  - Red blood cell count decreased [Unknown]
  - Haemoglobin decreased [Unknown]
  - Anaemia [Unknown]
  - Blood count abnormal [Unknown]
